FAERS Safety Report 8897009 (Version 1)
Quarter: 2012Q4

REPORT INFORMATION
  Report Type: 
  Country: US (occurrence: US)
  Receive Date: 20121108
  Receipt Date: 20121108
  Transmission Date: 20130627
  Serious: No
  Sender: FDA-Public Use
  Company Number: US-AMGEN-USASP2012026721

PATIENT
  Age: 59 Year
  Sex: Male

DRUGS (2)
  1. ENBREL [Suspect]
     Indication: RHEUMATOID ARTHRITIS
     Dosage: 25 mg, 2 times/wk
     Dates: start: 20020701
  2. ENBREL [Suspect]
     Indication: PSORIATIC ARTHROPATHY

REACTIONS (5)
  - Wrong technique in drug usage process [Recovered/Resolved]
  - Injection site extravasation [Recovered/Resolved]
  - Injection site pain [Not Recovered/Not Resolved]
  - Staphylococcal infection [Recovered/Resolved]
  - Injection site haemorrhage [Recovered/Resolved]
